FAERS Safety Report 24195484 (Version 5)
Quarter: 2024Q4

REPORT INFORMATION
  Report Type: Spontaneous
  Country: CO (occurrence: CO)
  Receive Date: 20240809
  Receipt Date: 20241203
  Transmission Date: 20250115
  Serious: No
  Sender: PFIZER
  Company Number: CO-PFIZER INC-202400232085

PATIENT
  Age: 16 Year
  Sex: Male

DRUGS (2)
  1. GENOTROPIN [Suspect]
     Active Substance: SOMATROPIN
     Dosage: 4.0 MG, DAILY
     Route: 058
  2. GENOTROPIN [Suspect]
     Active Substance: SOMATROPIN
     Dosage: 6 MG, DAILY
     Route: 058

REACTIONS (5)
  - Device breakage [Unknown]
  - Device information output issue [Unknown]
  - Poor quality device used [Unknown]
  - Device delivery system issue [Unknown]
  - Wrong technique in device usage process [Unknown]
